FAERS Safety Report 12846611 (Version 1)
Quarter: 2016Q4

REPORT INFORMATION
  Report Type: Spontaneous
  Country: BR (occurrence: BR)
  Receive Date: 20161014
  Receipt Date: 20161014
  Transmission Date: 20170207
  Serious: Yes (Life-Threatening, Hospitalization, Other)
  Sender: FDA-Public Use
  Company Number: BR-EMD SERONO-8112058

PATIENT
  Age: 42 Year
  Sex: Female

DRUGS (1)
  1. SAIZEN [Suspect]
     Active Substance: SOMATROPIN
     Indication: HORMONE REPLACEMENT THERAPY
     Dates: start: 2013

REACTIONS (17)
  - Multiple organ dysfunction syndrome [Recovered/Resolved]
  - Central nervous system infection [Unknown]
  - Pneumonia [Recovered/Resolved]
  - Nausea [Recovered/Resolved]
  - Pathogen resistance [Unknown]
  - Weight decreased [Recovered/Resolved]
  - Parosmia [Recovered/Resolved]
  - Coma [Recovered/Resolved]
  - Cardiac disorder [Recovered/Resolved]
  - Syncope [Recovered/Resolved]
  - Dehydration [Recovered/Resolved]
  - Dysphonia [Unknown]
  - Cardiac arrest [Recovered/Resolved]
  - Vomiting [Recovered/Resolved]
  - Sepsis [Recovered/Resolved]
  - Gastrointestinal disorder [Recovered/Resolved]
  - Gait disturbance [Unknown]

NARRATIVE: CASE EVENT DATE: 201511
